FAERS Safety Report 4624038-4 (Version None)
Quarter: 2005Q1

REPORT INFORMATION
  Report Type: 
  Country: None (occurrence: None)
  Receive Date: 20050331
  Receipt Date: 20040315
  Transmission Date: 20050727
  Serious: Yes (Death, Other)
  Sender: FDA-Public Use
  Company Number: PHFR2004GB01391

PATIENT
  Age: 52 Year
  Sex: Female

DRUGS (7)
  1. CARBAMAZEPINE [Suspect]
     Indication: BIPOLAR DISORDER
     Dosage: 300 MG, BID
     Route: 048
     Dates: start: 19970101, end: 20030101
  2. LORAZEPAM [Concomitant]
     Indication: ANXIETY
     Dosage: UP TO 1 MG, TID
     Route: 048
  3. HALOPERIDOL [Concomitant]
     Indication: ANXIETY
     Dosage: UP TO 5MG/DAY
     Route: 048
  4. CITALOPRAM HYDROBROMIDE [Concomitant]
     Indication: ANXIETY
     Dosage: 20MG/DAY
     Route: 048
  5. CLONAZEPAM [Concomitant]
     Indication: ANXIETY
     Dosage: UP TO 2 MG, BID
     Route: 048
  6. TEMAZEPAM [Concomitant]
     Dosage: 10 MG, QD
     Route: 048
  7. PROCYCLIDINE HYDROCHLORIDE 2MG TAB [Concomitant]
     Dosage: 2.5 MG, TID
     Route: 065

REACTIONS (6)
  - ALVEOLITIS [None]
  - BLOOD SODIUM DECREASED [None]
  - CORONARY ARTERY ATHEROSCLEROSIS [None]
  - LOWER RESPIRATORY TRACT INFECTION [None]
  - LUNG DISORDER [None]
  - RESPIRATORY DISORDER [None]
